FAERS Safety Report 22018879 (Version 2)
Quarter: 2023Q1

REPORT INFORMATION
  Report Type: Other
  Country: US (occurrence: None)
  Receive Date: 20230222
  Receipt Date: 20230223
  Transmission Date: 20230417
  Serious: Yes (Other)
  Sender: FDA-Public Use
  Company Number: US-ROCHE-3279985

PATIENT
  Age: 58 Year
  Sex: Female
  Weight: 66.738 kg

DRUGS (21)
  1. OCREVUS [Suspect]
     Active Substance: OCRELIZUMAB
     Indication: Relapsing multiple sclerosis
     Dosage: START: 3 YEARS AGO; DOSE: THE USUAL DOSE, OVER 5-6 HOURS ;ONGOING: YES, 300 MG
     Route: 042
     Dates: start: 2019
  2. OXCARBAZEPINE [Suspect]
     Active Substance: OXCARBAZEPINE
     Indication: Mood swings
     Route: 048
     Dates: start: 202211, end: 202301
  3. LAMOTRIGINE [Suspect]
     Active Substance: LAMOTRIGINE
     Indication: Mood swings
     Route: 065
     Dates: start: 202209
  4. BENADRYL [Concomitant]
     Active Substance: DIPHENHYDRAMINE HYDROCHLORIDE
     Indication: Premedication
     Dosage: GIVEN 15 MINUTES AFTER STEROID, PRIOR TO OCREVUS INFUSION
  5. DEPAKOTE [Concomitant]
     Active Substance: DIVALPROEX SODIUM
  6. VENLAFAXINE [Concomitant]
     Active Substance: VENLAFAXINE HYDROCHLORIDE
     Indication: Depression
     Route: 048
     Dates: start: 1997
  7. TRAZODONE [Concomitant]
     Active Substance: TRAZODONE HYDROCHLORIDE
     Indication: Insomnia
     Dates: start: 2018
  8. PANTOPRAZOLE [Concomitant]
     Active Substance: PANTOPRAZOLE
  9. ZOFRAN [Concomitant]
     Active Substance: ONDANSETRON HYDROCHLORIDE
     Indication: Nausea
     Route: 060
  10. ZOFRAN [Concomitant]
     Active Substance: ONDANSETRON HYDROCHLORIDE
     Indication: Headache
  11. BUSPIRONE [Concomitant]
     Active Substance: BUSPIRONE HYDROCHLORIDE
  12. ERGOCALCIFEROL [Concomitant]
     Active Substance: ERGOCALCIFEROL
  13. IBUPROFEN [Concomitant]
     Active Substance: IBUPROFEN
  14. PREGABALIN [Concomitant]
     Active Substance: PREGABALIN
  15. CLONAZEPAM [Concomitant]
     Active Substance: CLONAZEPAM
  16. GABAPENTIN [Concomitant]
     Active Substance: GABAPENTIN
  17. LYRICA [Concomitant]
     Active Substance: PREGABALIN
  18. CIPROFLOXACIN [Concomitant]
     Active Substance: CIPROFLOXACIN
  19. GILENYA [Concomitant]
     Active Substance: FINGOLIMOD HYDROCHLORIDE
  20. PENICILLIN [Concomitant]
     Active Substance: PENICILLIN
  21. VITAMIN B COMPLEX [Concomitant]
     Active Substance: CYANOCOBALAMIN\DEXPANTHENOL\NIACINAMIDE\PYRIDOXINE HYDROCHLORIDE\RIBOFLAVIN 5^-PHOSPHATE SODIUM\THIA

REACTIONS (12)
  - Multiple sclerosis [Not Recovered/Not Resolved]
  - Cystitis [Recovered/Resolved]
  - Pulmonary mass [Not Recovered/Not Resolved]
  - Goitre [Not Recovered/Not Resolved]
  - Asthenia [Not Recovered/Not Resolved]
  - Paraesthesia [Not Recovered/Not Resolved]
  - Headache [Recovered/Resolved]
  - Nausea [Recovered/Resolved]
  - Blood sodium decreased [Unknown]
  - Tremor [Unknown]
  - Drug hypersensitivity [Not Recovered/Not Resolved]
  - Hypoaesthesia [Not Recovered/Not Resolved]

NARRATIVE: CASE EVENT DATE: 20220901
